FAERS Safety Report 24888611 (Version 2)
Quarter: 2025Q1

REPORT INFORMATION
  Report Type: Spontaneous
  Country: DE (occurrence: DE)
  Receive Date: 20250127
  Receipt Date: 20250319
  Transmission Date: 20250408
  Serious: No
  Sender: NOVARTIS
  Company Number: DE-002147023-NVSC2025DE012404

PATIENT
  Sex: Female

DRUGS (1)
  1. KESIMPTA [Suspect]
     Active Substance: OFATUMUMAB
     Indication: Product used for unknown indication
     Dosage: 20 MG, QMO (MONTHLY)
     Route: 065
     Dates: start: 202410

REACTIONS (1)
  - Haemophilus infection [Unknown]

NARRATIVE: CASE EVENT DATE: 20250101
